FAERS Safety Report 13033111 (Version 4)
Quarter: 2017Q1

REPORT INFORMATION
  Report Type: Spontaneous
  Country: JP (occurrence: JP)
  Receive Date: 20161215
  Receipt Date: 20170302
  Transmission Date: 20170428
  Serious: Yes (Hospitalization, Disabling, Other)
  Sender: FDA-Public Use
  Company Number: JP-BAXTER-2016BAX063226

PATIENT
  Age: 27 Year
  Sex: Male

DRUGS (22)
  1. UROMITEXAN 400 MG [Suspect]
     Active Substance: MESNA
     Dosage: DOSE INTERRUPTED ON DAY8
     Route: 041
     Dates: start: 20161205, end: 20161205
  2. LIPACREON [Suspect]
     Active Substance: PANCRELIPASE
     Indication: PRODUCT USED FOR UNKNOWN INDICATION
     Route: 065
     Dates: start: 20161121
  3. UROMITEXAN 400 MG [Suspect]
     Active Substance: MESNA
     Dosage: DOSE INCREASED, 100% OF THE DOSE OF IFOMIDE ON DAY3
     Route: 041
     Dates: start: 20161130
  4. ADRIACIN [Suspect]
     Active Substance: DOXORUBICIN HYDROCHLORIDE
     Dosage: DAY 2
     Route: 041
     Dates: start: 20161129, end: 20161129
  5. UROMITEXAN 400 MG [Suspect]
     Active Substance: MESNA
     Dosage: 60% OF THE DOSE OF IFOMIDE UNTIL DAY 7
     Route: 041
     Dates: end: 20161204
  6. IFOSFAMIDE FOR INJECTION [Suspect]
     Active Substance: IFOSFAMIDE
     Dosage: DOSE REDUCED
     Route: 041
  7. G-CSF [Suspect]
     Active Substance: GRANULOCYTE COLONY-STIMULATING FACTOR NOS
     Indication: FEBRILE NEUTROPENIA
     Route: 065
     Dates: start: 20161208
  8. ADRIACIN [Suspect]
     Active Substance: DOXORUBICIN HYDROCHLORIDE
     Indication: LEIOMYOSARCOMA
     Dosage: DAY 1
     Route: 041
     Dates: start: 20161128
  9. NEXIUM [Suspect]
     Active Substance: ESOMEPRAZOLE MAGNESIUM
     Indication: PRODUCT USED FOR UNKNOWN INDICATION
     Route: 048
     Dates: start: 20161121
  10. G-CSF [Suspect]
     Active Substance: GRANULOCYTE COLONY-STIMULATING FACTOR NOS
     Route: 065
     Dates: start: 20161212
  11. OPIUM TINCTURE [Suspect]
     Active Substance: MORPHINE
     Indication: PRODUCT USED FOR UNKNOWN INDICATION
     Route: 048
     Dates: start: 20161121
  12. LAC-B [Suspect]
     Active Substance: BIFIDOBACTERIUM SPP.
     Indication: PRODUCT USED FOR UNKNOWN INDICATION
     Route: 065
     Dates: start: 20161121
  13. PLATELETS [Concomitant]
     Active Substance: HUMAN PLATELET, ALLOGENIC
     Indication: PRODUCT USED FOR UNKNOWN INDICATION
     Dosage: TRANSFUSION
     Route: 065
     Dates: start: 20160928
  14. IFOSFAMIDE FOR INJECTION [Suspect]
     Active Substance: IFOSFAMIDE
     Dosage: DAY 3
     Route: 041
     Dates: start: 20161130
  15. IFOSFAMIDE FOR INJECTION [Suspect]
     Active Substance: IFOSFAMIDE
     Dosage: DAY 5, DRUG DISCONTINUED
     Route: 041
     Dates: start: 20161202, end: 20161202
  16. UROMITEXAN 400 MG [Suspect]
     Active Substance: MESNA
     Indication: PROPHYLAXIS
     Dosage: STARTED AT 60% OF THE DOSE OF IFOMIDE, DAY 1
     Route: 041
     Dates: start: 20161128
  17. UROMITEXAN 400 MG [Suspect]
     Active Substance: MESNA
     Route: 041
     Dates: start: 20161212
  18. IFOSFAMIDE FOR INJECTION [Suspect]
     Active Substance: IFOSFAMIDE
     Dosage: DAY 2
     Route: 041
     Dates: start: 20161129
  19. IFOSFAMIDE FOR INJECTION [Suspect]
     Active Substance: IFOSFAMIDE
     Dosage: DAY 4
     Route: 041
     Dates: start: 20161201
  20. UROMITEXAN 400 MG [Suspect]
     Active Substance: MESNA
     Dosage: DOSE REINTRODUCED ON DAY 9
     Route: 041
     Dates: start: 20161206
  21. IFOSFAMIDE FOR INJECTION [Suspect]
     Active Substance: IFOSFAMIDE
     Indication: LEIOMYOSARCOMA
     Dosage: DAY 1
     Route: 041
     Dates: start: 20161128
  22. PACKED RED BLOOD CELL [Concomitant]
     Indication: PRODUCT USED FOR UNKNOWN INDICATION
     Dosage: TRANSFUSION
     Route: 065
     Dates: start: 20160928

REACTIONS (5)
  - Decreased appetite [Recovering/Resolving]
  - Febrile neutropenia [Recovered/Resolved]
  - Cystitis haemorrhagic [Recovering/Resolving]
  - Azoospermia [Not Recovered/Not Resolved]
  - Alopecia [Not Recovered/Not Resolved]

NARRATIVE: CASE EVENT DATE: 20161130
